FAERS Safety Report 21465750 (Version 1)
Quarter: 2022Q4

REPORT INFORMATION
  Report Type: Spontaneous
  Country: US (occurrence: US)
  Receive Date: 20221017
  Receipt Date: 20221017
  Transmission Date: 20230113
  Serious: No
  Sender: FDA-Public Use
  Company Number: US-PFIZER INC-202201230106

PATIENT
  Age: 78 Year
  Sex: Female

DRUGS (1)
  1. DEPO-ESTRADIOL [Suspect]
     Active Substance: ESTRADIOL CYPIONATE
     Indication: Oestrogen deficiency
     Dosage: UNK

REACTIONS (9)
  - Feeling abnormal [Unknown]
  - Weight increased [Unknown]
  - Insomnia [Unknown]
  - Headache [Unknown]
  - Neck pain [Unknown]
  - Burning sensation [Unknown]
  - Hyperhidrosis [Unknown]
  - Malaise [Unknown]
  - Peripheral coldness [Unknown]
